FAERS Safety Report 5135125-9 (Version None)
Quarter: 2006Q4

REPORT INFORMATION
  Report Type: 
  Country: None (occurrence: None)
  Receive Date: 20060831
  Receipt Date: 20060613
  Transmission Date: 20070319
  Serious: No
  Sender: FDA-Public Use
  Company Number: 2006-BP-05488BP

PATIENT
  Age: 76 Year
  Sex: Male
  Weight: 95.8 kg

DRUGS (13)
  1. SPIRIVA [Suspect]
     Indication: CHRONIC OBSTRUCTIVE PULMONARY DISEASE
     Dosage: ONCE DAILY (18 MCG,1 IN 1 D),IH
     Route: 055
     Dates: start: 20060301, end: 20060606
  2. SPIRIVA [Suspect]
     Indication: EMPHYSEMA
     Dosage: ONCE DAILY (18 MCG,1 IN 1 D),IH
     Route: 055
     Dates: start: 20060301, end: 20060606
  3. GLYBURIDE [Concomitant]
  4. METFORMIN HCL [Concomitant]
  5. MICARDIS [Concomitant]
  6. DILTIAZEM [Concomitant]
  7. ASPIRIN [Concomitant]
  8. ADVIL [Concomitant]
  9. ALBUTEROL [Concomitant]
  10. INDOCIN [Concomitant]
  11. TYLENOL [Concomitant]
  12. CELEBREX [Concomitant]
  13. ADVAIR (SERETIDE /01420901/) [Concomitant]

REACTIONS (7)
  - DYSURIA [None]
  - FLUID RETENTION [None]
  - MICTURITION DISORDER [None]
  - OEDEMA PERIPHERAL [None]
  - SENSORY LOSS [None]
  - URINARY INCONTINENCE [None]
  - URINE FLOW DECREASED [None]
